FAERS Safety Report 8859289 (Version 1)
Quarter: 2012Q4

REPORT INFORMATION
  Report Type: 
  Country: US (occurrence: US)
  Receive Date: 20121024
  Receipt Date: 20121024
  Transmission Date: 20130627
  Serious: No
  Sender: FDA-Public Use
  Company Number: US-ASTRAZENECA-2012SE21851

PATIENT
  Age: 80 Year
  Sex: Female
  Weight: 79.8 kg

DRUGS (2)
  1. TOPROL XL [Suspect]
     Indication: HYPERTENSION
     Route: 048
  2. CRESTOR [Concomitant]

REACTIONS (4)
  - Nasopharyngitis [Unknown]
  - Depression [Unknown]
  - Lethargy [Unknown]
  - Decreased interest [Unknown]
